FAERS Safety Report 5554328-2 (Version None)
Quarter: 2007Q4

REPORT INFORMATION
  Report Type: 
  Country: None (occurrence: None)
  Receive Date: 20071212
  Receipt Date: 20071212
  Transmission Date: 20080405
  Serious: Yes (Other)
  Sender: FDA-Public Use
  Company Number: None

PATIENT
  Sex: Female
  Weight: 78.0187 kg

DRUGS (1)
  1. AZULFIDINE [Suspect]
     Indication: CROHN'S DISEASE
     Dosage: 500MG 10-12 YRS AGO AND RECENT ATTEMPT

REACTIONS (5)
  - ABDOMINAL DISTENSION [None]
  - ILL-DEFINED DISORDER [None]
  - MALAISE [None]
  - PAIN [None]
  - PHARMACEUTICAL PRODUCT COMPLAINT [None]
